FAERS Safety Report 9328357 (Version 1)
Quarter: 2013Q2

REPORT INFORMATION
  Report Type: Spontaneous
  Country: US (occurrence: US)
  Receive Date: 20130604
  Receipt Date: 20130604
  Transmission Date: 20140414
  Serious: No
  Sender: FDA-Public Use
  Company Number: US-SANOFI-AVENTIS-2012SA067822

PATIENT
  Age: 65 Year
  Sex: Male
  Weight: 86 kg

DRUGS (9)
  1. SOLOSTAR [Suspect]
     Indication: TYPE 2 DIABETES MELLITUS
     Dates: start: 20120810
  2. LANTUS SOLOSTAR [Suspect]
     Indication: TYPE 2 DIABETES MELLITUS
     Dosage: DOSE:16 UNIT(S)
     Route: 058
     Dates: start: 20120810
  3. GABAPENTIN [Concomitant]
     Indication: EPILEPSY
  4. METOPROLOL [Concomitant]
     Indication: BLOOD PRESSURE
     Dates: start: 201001
  5. PRAVASTATIN [Concomitant]
     Indication: BLOOD CHOLESTEROL
     Dates: start: 201001
  6. ASPIRIN ^BAYER^ [Concomitant]
     Indication: CARDIAC DISORDER
     Dates: start: 2008
  7. JANUVIA [Concomitant]
     Indication: DIABETES MELLITUS
     Dates: start: 2009
  8. GEMFIBROZIL [Concomitant]
     Indication: BLOOD CHOLESTEROL
     Dates: start: 2011
  9. FISH OIL [Concomitant]

REACTIONS (1)
  - Injury associated with device [Unknown]
